FAERS Safety Report 5649424-5 (Version None)
Quarter: 2008Q1

REPORT INFORMATION
  Report Type: 
  Country: None (occurrence: None)
  Receive Date: 20080304
  Receipt Date: 20080220
  Transmission Date: 20080703
  Serious: Yes (Hospitalization)
  Sender: FDA-Public Use
  Company Number: BR-BAYER-200712497GDS

PATIENT
  Age: 70 Year
  Sex: Female
  Weight: 50 kg

DRUGS (15)
  1. SORAFENIB [Suspect]
     Indication: NON-SMALL CELL LUNG CANCER
     Dosage: TOTAL DAILY DOSE: 400 MG
     Route: 048
     Dates: start: 20070320
  2. CARBOPLATIN [Suspect]
     Indication: NON-SMALL CELL LUNG CANCER
     Route: 042
     Dates: start: 20070319, end: 20070319
  3. CARBOPLATIN [Suspect]
     Route: 042
     Dates: start: 20070409, end: 20070409
  4. PACLITAXEL [Suspect]
     Indication: NON-SMALL CELL LUNG CANCER
     Route: 042
     Dates: start: 20070319, end: 20070319
  5. PACLITAXEL [Suspect]
     Route: 042
     Dates: start: 20070409, end: 20070409
  6. ASPIRIN [Concomitant]
     Indication: THROMBOSIS PROPHYLAXIS
     Route: 048
     Dates: start: 19940301
  7. FLUOXETINA [Concomitant]
     Indication: DEPRESSION
     Route: 048
     Dates: start: 19940301
  8. SIMVASTATIN [Concomitant]
     Indication: BLOOD CHOLESTEROL INCREASED
     Route: 048
     Dates: start: 19900101
  9. INSULIN [Concomitant]
     Indication: DIABETES MELLITUS
     Route: 048
     Dates: start: 19900101
  10. CAPTOPRIL [Concomitant]
     Indication: HYPERTENSION
     Route: 048
     Dates: start: 19900101
  11. ATENOLOL [Concomitant]
     Indication: HYPERTENSION
     Route: 048
     Dates: start: 19900101
  12. ACETAMINOPHEN W/ CODEINE [Concomitant]
     Indication: CHEST PAIN
     Route: 048
     Dates: start: 20070331
  13. ACETAMINOPHEN [Concomitant]
     Indication: CHEST PAIN
     Route: 065
     Dates: start: 20070305
  14. DIPYRONE [Concomitant]
     Indication: CHEST PAIN
     Route: 065
     Dates: start: 20070305
  15. PLASIL [Concomitant]
     Indication: NAUSEA
     Route: 065
     Dates: start: 20070320, end: 20070322

REACTIONS (1)
  - FEBRILE NEUTROPENIA [None]
